FAERS Safety Report 14009738 (Version 1)
Quarter: 2017Q3

REPORT INFORMATION
  Report Type: Spontaneous
  Country: HU (occurrence: HU)
  Receive Date: 20170925
  Receipt Date: 20170925
  Transmission Date: 20171128
  Serious: Yes (Other)
  Sender: FDA-Public Use
  Company Number: HU-ROCHE-1969407

PATIENT
  Age: 79 Year

DRUGS (1)
  1. METALYSE [Suspect]
     Active Substance: TENECTEPLASE
     Indication: ACUTE MYOCARDIAL INFARCTION
     Route: 065

REACTIONS (3)
  - Skin abrasion [Unknown]
  - Gastrointestinal haemorrhage [Unknown]
  - Polyp [Unknown]
